FAERS Safety Report 8722062 (Version 3)
Quarter: 2013Q2

REPORT INFORMATION
  Report Type: Spontaneous
  Country: BE (occurrence: BE)
  Receive Date: 20120814
  Receipt Date: 20130409
  Transmission Date: 20140414
  Serious: Yes (Death, Life-Threatening, Other)
  Sender: FDA-Public Use
  Company Number: BE-ASTELLAS-2012EU005682

PATIENT
  Age: 45 Year
  Sex: Male

DRUGS (7)
  1. PROGRAFT [Suspect]
     Indication: CHRONIC GRAFT VERSUS HOST DISEASE
     Dosage: UNK
     Route: 065
     Dates: start: 20061016
  2. IMURAN                             /00001501/ [Concomitant]
     Indication: CHRONIC GRAFT VERSUS HOST DISEASE
     Dosage: UNK
     Route: 065
     Dates: start: 20061016
  3. MEDROL                             /00049601/ [Concomitant]
     Indication: CHRONIC GRAFT VERSUS HOST DISEASE
     Dosage: UNK
     Route: 065
     Dates: start: 20050816, end: 20070317
  4. OMEPRAZOLE [Concomitant]
     Dosage: 20 MG, UID/QD
     Route: 065
     Dates: start: 20061113, end: 20070312
  5. ZYRTEC [Concomitant]
     Dosage: UNK
     Route: 065
     Dates: start: 20070312, end: 20070328
  6. STILNOCT [Concomitant]
     Dosage: 3 TORR, TID
     Route: 065
     Dates: start: 20070316, end: 20070317
  7. CONTRAMAL [Concomitant]
     Dosage: 100 MG, PRN
     Route: 065
     Dates: start: 20070316, end: 20070316

REACTIONS (12)
  - Off label use [Unknown]
  - Respiratory failure [Fatal]
  - Pneumocystis jirovecii pneumonia [Not Recovered/Not Resolved]
  - Bronchopulmonary aspergillosis [Not Recovered/Not Resolved]
  - Graft versus host disease [Fatal]
  - Thrombocytopenia [Recovering/Resolving]
  - Leukopenia [Fatal]
  - Disseminated intravascular coagulation [Fatal]
  - Toxicity to various agents [Fatal]
  - Renal failure acute [Not Recovered/Not Resolved]
  - Pneumonia bacterial [Not Recovered/Not Resolved]
  - Gastric ulcer [Unknown]
